FAERS Safety Report 9759826 (Version 2)
Quarter: 2013Q4

REPORT INFORMATION
  Report Type: Spontaneous
  Country: IT (occurrence: None)
  Receive Date: 20131212
  Receipt Date: 20131227
  Transmission Date: 20140711
  Serious: Yes (Other)
  Sender: FDA-Public Use
  Company Number: AUR-APL-2013-10412

PATIENT
  Age: 63 Year
  Sex: Male

DRUGS (3)
  1. SIMVASTATIN [Suspect]
     Indication: PRODUCT USED FOR UNKNOWN INDICATION
     Route: 048
     Dates: start: 20131001, end: 20131015
  2. NORVASC (AMLODIPINE BESILATE) [Concomitant]
  3. TRIATEC HCT (SALUTEC) [Concomitant]

REACTIONS (3)
  - Hypercapnia [None]
  - Sedation [None]
  - Confusional state [None]
